FAERS Safety Report 6396221-1 (Version None)
Quarter: 2009Q4

REPORT INFORMATION
  Report Type: 
  Country: None (occurrence: None)
  Receive Date: 20091011
  Receipt Date: 20090930
  Transmission Date: 20100525
  Serious: Yes (Other)
  Sender: FDA-Public Use
  Company Number: US-TYCO HEALTHCARE/MALLINCKRODT-T200901510

PATIENT
  Sex: Male
  Weight: 106.5 kg

DRUGS (18)
  1. OPTIMARK [Suspect]
     Indication: NUCLEAR MAGNETIC RESONANCE IMAGING BRAIN
     Dosage: UNK
     Dates: start: 20070119, end: 20070119
  2. OPTIMARK [Suspect]
     Indication: NUCLEAR MAGNETIC RESONANCE IMAGING
     Dosage: UNK
     Dates: start: 20070123, end: 20070123
  3. OPTIMARK [Suspect]
     Dosage: UNK
     Dates: start: 20070126, end: 20070126
  4. OMNISCAN [Suspect]
     Indication: NUCLEAR MAGNETIC RESONANCE IMAGING
     Dosage: 20 ML, SINGLE
     Dates: start: 20061102, end: 20061102
  5. PHOSLO [Concomitant]
     Indication: MINERAL SUPPLEMENTATION
     Dosage: 16 TABS DAILY
  6. METOPROLOL [Concomitant]
     Indication: DRUG THERAPY
     Dosage: 50 MG (1 TAB), QD
  7. REGLAN [Concomitant]
     Indication: IMPAIRED GASTRIC EMPTYING
     Dosage: 5 MG, A.C
  8. OXYCODONE [Concomitant]
     Indication: ARTHRALGIA
     Dosage: 5 MG, Q4H
  9. OXYCONTIN [Concomitant]
     Indication: MUSCULOSKELETAL PAIN
     Dosage: 1-2 TIMES DAILY
  10. NEXIUM [Concomitant]
     Indication: GASTRITIS
     Dosage: 40 MG, BID
  11. EPOGEN [Concomitant]
     Indication: DIALYSIS
  12. IRON [Concomitant]
     Indication: DIALYSIS
  13. COUMADIN [Concomitant]
     Indication: THROMBOSIS PROPHYLAXIS
  14. HUMULIN                            /00646001/ [Concomitant]
     Indication: DIABETES MELLITUS
  15. HUMULIN 70/30 [Concomitant]
     Indication: DIABETES MELLITUS
  16. VANCOMYCIN [Concomitant]
     Indication: BACTERIAL INFECTION
  17. GENTAMYCIN-MP [Concomitant]
     Indication: BACTERIAL INFECTION
  18. DECAMYCIN [Concomitant]
     Indication: BACTERIAL INFECTION

REACTIONS (9)
  - ANAEMIA [None]
  - ARTHRITIS [None]
  - COAGULOPATHY [None]
  - FIBROMYALGIA [None]
  - HYPERTHYROIDISM [None]
  - INTERVERTEBRAL DISC DEGENERATION [None]
  - LACUNAR INFARCTION [None]
  - NEPHROGENIC SYSTEMIC FIBROSIS [None]
  - SUPERIOR VENA CAVAL OCCLUSION [None]
